FAERS Safety Report 14779834 (Version 1)
Quarter: 2018Q2

REPORT INFORMATION
  Report Type: Spontaneous
  Country: ES (occurrence: ES)
  Receive Date: 20180419
  Receipt Date: 20180419
  Transmission Date: 20180711
  Serious: Yes (Hospitalization)
  Sender: FDA-Public Use
  Company Number: ES-TEVA-2018-ES-881787

PATIENT
  Age: 83 Year
  Sex: Male

DRUGS (4)
  1. BISOPROLOL AUROVITAS 2,5 MG COMPRESSED FILMS WITH FILM EFG, 28 TABLETS [Concomitant]
     Indication: ATRIAL FIBRILLATION
     Dosage: 1-0-0
     Route: 048
     Dates: start: 20170603
  2. SINTROM [Interacting]
     Active Substance: ACENOCOUMAROL
     Indication: ATRIAL FIBRILLATION
     Dosage: ACCORDING TO GUIDELINE
     Route: 048
     Dates: start: 20150914, end: 20170920
  3. ATORVASTATINA ABEX 40 MG COMPRESSED FILMS WITH FILM EFG, 28 TABLETS [Concomitant]
     Indication: HYPERCHOLESTEROLAEMIA
     Route: 048
     Dates: start: 20141219
  4. CLOPIDOGREL [Suspect]
     Active Substance: CLOPIDOGREL BISULFATE
     Indication: ATRIAL FIBRILLATION
     Dosage: 0-1-0
     Route: 048
     Dates: start: 20140920

REACTIONS (3)
  - Hypocoagulable state [Recovered/Resolved]
  - Drug interaction [Unknown]
  - Duodenal ulcer haemorrhage [Recovered/Resolved]

NARRATIVE: CASE EVENT DATE: 20170920
